FAERS Safety Report 8933579 (Version 2)
Quarter: 2012Q4

REPORT INFORMATION
  Report Type: 
  Country: US (occurrence: US)
  Receive Date: 20121129
  Receipt Date: 20121228
  Transmission Date: 20130627
  Serious: No
  Sender: FDA-Public Use
  Company Number: US-PFIZER INC-2012296533

PATIENT
  Age: 80 Year
  Sex: Male
  Weight: 90.7 kg

DRUGS (9)
  1. CELEBREX [Suspect]
     Indication: PAIN IN HIP
     Dosage: 200 mg, 2x/day
     Dates: start: 201211, end: 20121121
  2. CELEBREX [Suspect]
     Indication: PAIN IN THIGH
  3. CELEBREX [Suspect]
     Indication: LEG PAIN
  4. LIPITOR [Concomitant]
     Dosage: UNK
  5. NORVASC [Concomitant]
     Dosage: UNK
  6. FLOMAX [Concomitant]
     Dosage: UNK
  7. ASA [Concomitant]
     Dosage: UNK
  8. SOMA [Concomitant]
     Dosage: UNK
  9. VICODIN [Concomitant]
     Dosage: UNK

REACTIONS (2)
  - Dizziness [Unknown]
  - Limb discomfort [Unknown]
